FAERS Safety Report 4839691-X (Version None)
Quarter: 2005Q4

REPORT INFORMATION
  Report Type: 
  Country: None (occurrence: None)
  Receive Date: 20051129
  Receipt Date: 20050608
  Transmission Date: 20060501
  Serious: Yes (Other)
  Sender: FDA-Public Use
  Company Number: US-GLAXOSMITHKLINE-A0561802A

PATIENT
  Age: 47 Year
  Sex: Female

DRUGS (2)
  1. WELLBUTRIN [Suspect]
     Indication: SEASONAL AFFECTIVE DISORDER
     Dosage: 150MG PER DAY
     Route: 048
     Dates: start: 19970101
  2. BIOSLIFE 2 [Suspect]

REACTIONS (2)
  - DRUG INEFFECTIVE [None]
  - HYPOMANIA [None]
